FAERS Safety Report 8410168-8 (Version None)
Quarter: 2012Q2

REPORT INFORMATION
  Report Type: 
  Country: None (occurrence: None)
  Receive Date: 20120605
  Receipt Date: 20120529
  Transmission Date: 20120825
  Serious: Yes (Hospitalization, Other)
  Sender: FDA-Public Use
  Company Number: PHHY2012FR047054

PATIENT
  Sex: Female

DRUGS (4)
  1. LERCANIDIPINE [Concomitant]
     Dosage: UNK
  2. VOLTAREN [Suspect]
     Indication: ARTHRALGIA
     Dosage: 2 DF, PER DAY
  3. PRAVASTATIN [Concomitant]
     Dosage: UNK
  4. LASIX [Concomitant]
     Dosage: UNK

REACTIONS (2)
  - RENAL FAILURE ACUTE [None]
  - FALL [None]
